FAERS Safety Report 19775787 (Version 1)
Quarter: 2021Q3

REPORT INFORMATION
  Report Type: Spontaneous
  Country: JP (occurrence: JP)
  Receive Date: 20210902
  Receipt Date: 20210902
  Transmission Date: 20211014
  Serious: Yes (Hospitalization, Other)
  Sender: FDA-Public Use
  Company Number: JP-ASTELLAS-2021JP016976

PATIENT
  Age: 8 Decade
  Sex: Male

DRUGS (1)
  1. BETANIS [Suspect]
     Active Substance: MIRABEGRON
     Indication: HYPERTONIC BLADDER
     Route: 048

REACTIONS (2)
  - Dyspnoea [Recovered/Resolved]
  - Eosinophilic pneumonia [Recovered/Resolved]
